FAERS Safety Report 22323555 (Version 1)
Quarter: 2023Q2

REPORT INFORMATION
  Report Type: Report from Study
  Country: IT (occurrence: IT)
  Receive Date: 20230516
  Receipt Date: 20230516
  Transmission Date: 20230721
  Serious: Yes (Hospitalization)
  Sender: FDA-Public Use
  Company Number: None

PATIENT
  Age: 84 Year
  Sex: Male

DRUGS (6)
  1. RAMIPRIL [Suspect]
     Active Substance: RAMIPRIL
     Indication: Product used for unknown indication
     Dates: start: 20210914, end: 20220607
  2. BETAMETHASONE\CHLORAMPHENICOL [Suspect]
     Active Substance: BETAMETHASONE\CHLORAMPHENICOL
     Indication: Conjunctivitis
     Dosage: DOSAGE: 3 DROPS FREQUENCY OF?ADMINISTRATION: DAILY ROUTE: OPHTHALMIC
     Dates: start: 20220606, end: 20220607
  3. FERROUS SULFATE [Concomitant]
     Active Substance: FERROUS SULFATE
  4. FOLIC ACID [Concomitant]
     Active Substance: FOLIC ACID
  5. ESOMEPRAZOLE MAGNESIUM [Concomitant]
     Active Substance: ESOMEPRAZOLE MAGNESIUM
  6. BISOPROLOL [Concomitant]
     Active Substance: BISOPROLOL

REACTIONS (4)
  - Drug intolerance [Recovering/Resolving]
  - Eye oedema [Recovering/Resolving]
  - Angioedema [Recovering/Resolving]
  - Conjunctivitis [Recovering/Resolving]

NARRATIVE: CASE EVENT DATE: 20220606
